FAERS Safety Report 9745689 (Version 4)
Quarter: 2014Q1

REPORT INFORMATION
  Report Type: Spontaneous
  Country: JP (occurrence: None)
  Receive Date: 20131205
  Receipt Date: 20140311
  Transmission Date: 20141002
  Serious: Yes (Hospitalization, Other)
  Sender: FDA-Public Use
  Company Number: ADR-2013-02192

PATIENT
  Age: 64 Year
  Sex: Female
  Weight: 47 kg

DRUGS (1)
  1. GABALON [Suspect]
     Indication: SPINAL CORD INJURY
     Route: 037

REACTIONS (3)
  - Bladder cancer [None]
  - Cystitis [None]
  - Disease progression [None]
